FAERS Safety Report 4499736-6 (Version None)
Quarter: 2004Q4

REPORT INFORMATION
  Report Type: 
  Country: None (occurrence: None)
  Receive Date: 20041112
  Receipt Date: 20041103
  Transmission Date: 20050328
  Serious: Yes (Other)
  Sender: FDA-Public Use
  Company Number: 200418531US

PATIENT
  Sex: 0

DRUGS (1)
  1. KETEK [Suspect]
     Dosage: DOSE: UNK

REACTIONS (3)
  - FATIGUE [None]
  - LETHARGY [None]
  - SEPSIS [None]
